FAERS Safety Report 5918641-9 (Version None)
Quarter: 2008Q4

REPORT INFORMATION
  Report Type: 
  Country: None (occurrence: None)
  Receive Date: 20081010
  Receipt Date: 20080924
  Transmission Date: 20090506
  Serious: Yes (Other)
  Sender: FDA-Public Use
  Company Number: 0252

PATIENT
  Age: 78 Year
  Sex: Male

DRUGS (1)
  1. INDOMETHACIN [Suspect]
     Indication: ARTHRITIS
     Dosage: 75 MG PO
     Route: 048
     Dates: start: 20080722, end: 20080723

REACTIONS (1)
  - PHARYNGEAL OEDEMA [None]
